FAERS Safety Report 5264854-1 (Version None)
Quarter: 2007Q1

REPORT INFORMATION
  Report Type: 
  Country: None (occurrence: None)
  Receive Date: 20070314
  Receipt Date: 20070313
  Transmission Date: 20070707
  Serious: Yes (Other)
  Sender: FDA-Public Use
  Company Number: 2007JP000914

PATIENT
  Age: 48 Year
  Sex: Female

DRUGS (3)
  1. CEFAMEZIN [Suspect]
     Route: 065
  2. ANESTHESIA [Concomitant]
     Route: 065
  3. FOSFOMYCIN [Concomitant]
     Route: 065

REACTIONS (4)
  - ANAPHYLACTIC REACTION [None]
  - EYELID OEDEMA [None]
  - HOT FLUSH [None]
  - LIP OEDEMA [None]
